FAERS Safety Report 12285377 (Version 1)
Quarter: 2016Q2

REPORT INFORMATION
  Report Type: Spontaneous
  Country: US (occurrence: None)
  Receive Date: 20160419
  Receipt Date: 20160419
  Transmission Date: 20160815
  Serious: Yes (Disabling)
  Sender: FDA-Public Use
  Company Number: None

PATIENT
  Age: 40 Year
  Sex: Female
  Weight: 74.84 kg

DRUGS (1)
  1. MESTINON [Suspect]
     Active Substance: PYRIDOSTIGMINE BROMIDE
     Indication: MYASTHENIC SYNDROME
     Route: 048
     Dates: start: 20150901, end: 20151123

REACTIONS (6)
  - Product substitution issue [None]
  - Mastication disorder [None]
  - Dysphagia [None]
  - Mobility decreased [None]
  - Fatigue [None]
  - Drug effect decreased [None]

NARRATIVE: CASE EVENT DATE: 20150901
